FAERS Safety Report 23044417 (Version 1)
Quarter: 2023Q4

REPORT INFORMATION
  Report Type: Spontaneous
  Country: US (occurrence: US)
  Receive Date: 20231009
  Receipt Date: 20231009
  Transmission Date: 20240110
  Serious: Yes (Hospitalization)
  Sender: FDA-Public Use
  Company Number: US-drreddys-LIT/USA/23/0178925

PATIENT
  Age: 60 Year
  Sex: Female

DRUGS (2)
  1. BENDAMUSTINE [Suspect]
     Active Substance: BENDAMUSTINE
     Indication: Marginal zone lymphoma
     Dosage: SECOND LINE CHEMOTHERAPY 3 CYCLES
  2. OBINUTUZUMAB [Suspect]
     Active Substance: OBINUTUZUMAB
     Indication: Marginal zone lymphoma
     Dosage: SECOND LINE CHEMOTHERAPY 3 CYCLES

REACTIONS (3)
  - Gastrointestinal disorder [Unknown]
  - Gastrointestinal toxicity [Unknown]
  - Product use in unapproved indication [Unknown]
